FAERS Safety Report 9226718 (Version 1)
Quarter: 2013Q2

REPORT INFORMATION
  Report Type: Spontaneous
  Country: US (occurrence: None)
  Receive Date: 20130410
  Receipt Date: 20130410
  Transmission Date: 20140414
  Serious: Yes (Hospitalization)
  Sender: FDA-Public Use
  Company Number: None

PATIENT
  Age: 65 Year
  Sex: Male
  Weight: 100.5 kg

DRUGS (13)
  1. POTASSIUM [Suspect]
     Route: 048
  2. POTASSIUM [Suspect]
     Dosage: 10MEQ XR 10 CAPS BID PO
     Route: 048
  3. ALDACTONE [Suspect]
  4. SPIRONOLACTONE [Concomitant]
  5. LASIX [Concomitant]
  6. PROTONIX [Concomitant]
  7. ZANAFLEX [Concomitant]
  8. VERAPAMIL [Concomitant]
  9. MAXALT [Concomitant]
  10. FLOMAX [Concomitant]
  11. MS CONTIN [Concomitant]
  12. GLIPIZIDE [Concomitant]
  13. VALIUM [Concomitant]

REACTIONS (5)
  - Incorrect dose administered [None]
  - Bradycardia [None]
  - Cardiac arrest [None]
  - Hyperkalaemia [None]
  - Muscle spasms [None]
